FAERS Safety Report 9237548 (Version 1)
Quarter: 2013Q2

REPORT INFORMATION
  Report Type: Spontaneous
  Country: CA (occurrence: CA)
  Receive Date: 20130418
  Receipt Date: 20130418
  Transmission Date: 20140414
  Serious: Yes (Other)
  Sender: FDA-Public Use
  Company Number: CA-AMGEN-CANSP2013025790

PATIENT
  Age: 46 Year
  Sex: Female

DRUGS (1)
  1. PROLIA [Suspect]
     Indication: OSTEOPOROSIS POSTMENOPAUSAL
     Dosage: UNK
     Dates: start: 20130117

REACTIONS (5)
  - Venous insufficiency [Unknown]
  - Weight increased [Unknown]
  - Arthralgia [Unknown]
  - Oedema peripheral [Unknown]
  - Rash [Unknown]
